FAERS Safety Report 25466438 (Version 1)
Quarter: 2025Q2

REPORT INFORMATION
  Report Type: Spontaneous
  Country: US (occurrence: US)
  Receive Date: 20250623
  Receipt Date: 20250623
  Transmission Date: 20250717
  Serious: Yes (Death, Life-Threatening, Hospitalization, Other)
  Sender: STRIDES
  Company Number: US-STRIDES PHARMA UK LTD.-2025SP007534

PATIENT
  Age: 45 Year
  Sex: Female

DRUGS (12)
  1. VANCOMYCIN [Suspect]
     Active Substance: VANCOMYCIN
     Indication: Sepsis
     Route: 065
  2. VANCOMYCIN [Suspect]
     Active Substance: VANCOMYCIN
     Indication: Vaginal necrosis
  3. VANCOMYCIN [Suspect]
     Active Substance: VANCOMYCIN
     Indication: Vaginal infection
  4. PIPERACILLIN SODIUM\TAZOBACTAM SODIUM [Suspect]
     Active Substance: PIPERACILLIN SODIUM\TAZOBACTAM SODIUM
     Indication: Sepsis
     Route: 065
  5. PIPERACILLIN SODIUM\TAZOBACTAM SODIUM [Suspect]
     Active Substance: PIPERACILLIN SODIUM\TAZOBACTAM SODIUM
     Indication: Vaginal necrosis
  6. PIPERACILLIN SODIUM\TAZOBACTAM SODIUM [Suspect]
     Active Substance: PIPERACILLIN SODIUM\TAZOBACTAM SODIUM
     Indication: Vaginal infection
  7. CLINDAMYCIN [Suspect]
     Active Substance: CLINDAMYCIN
     Indication: Sepsis
     Route: 065
  8. IMMUNE GLOBULIN NOS [Suspect]
     Active Substance: IMMUNE GLOBULIN NOS
     Indication: Immune thrombocytopenia
     Route: 042
  9. EPINEPHRINE [Suspect]
     Active Substance: EPINEPHRINE
     Indication: Shock
     Route: 065
  10. NOREPINEPHRINE [Suspect]
     Active Substance: NOREPINEPHRINE
     Indication: Shock
     Route: 065
  11. VASOPRESSIN [Suspect]
     Active Substance: VASOPRESSIN
     Indication: Shock
     Route: 065
  12. SODIUM BICARBONATE [Suspect]
     Active Substance: SODIUM BICARBONATE
     Indication: Metabolic acidosis
     Route: 065

REACTIONS (1)
  - Drug ineffective [Fatal]
